FAERS Safety Report 23084472 (Version 3)
Quarter: 2023Q4

REPORT INFORMATION
  Report Type: Report from Study
  Country: ES (occurrence: ES)
  Receive Date: 20231019
  Receipt Date: 20231025
  Transmission Date: 20240109
  Serious: Yes (Life-Threatening)
  Sender: FDA-Public Use
  Company Number: ES-AMGEN-ESPCT2023185312

PATIENT
  Age: 18 Year
  Sex: Male

DRUGS (9)
  1. CARFILZOMIB [Suspect]
     Active Substance: CARFILZOMIB
     Indication: Acute lymphocytic leukaemia
     Dosage: 115.36 MILLIGRAM
     Route: 042
     Dates: start: 20231003
  2. DAUNORUBICIN [Concomitant]
     Active Substance: DAUNORUBICIN
     Dosage: 123.6 MILLIGRAM
     Dates: start: 20231004, end: 20231004
  3. PEG/L-ASPARAGINASE [Concomitant]
     Active Substance: PEGASPARGASE
     Dosage: 5150 UNK
     Dates: start: 20231006, end: 20231006
  4. METHOTREXATE [Concomitant]
     Active Substance: METHOTREXATE
     Dosage: 12 MILLIGRAM
     Dates: start: 20231003, end: 20231010
  5. VINCRISTINE [Concomitant]
     Active Substance: VINCRISTINE
     Dosage: 2 MILLIGRAM
     Dates: start: 20231003, end: 20231010
  6. SULFAMETHOXAZOLE\TRIMETHOPRIM [Concomitant]
     Active Substance: SULFAMETHOXAZOLE\TRIMETHOPRIM
     Dosage: UNK MILLIGRAM
     Route: 048
     Dates: start: 20230919
  7. AMPHOTERICIN B [Concomitant]
     Active Substance: AMPHOTERICIN B
     Dosage: 270 MILLIGRAM
     Route: 042
     Dates: start: 20230927
  8. CEFEPIME [Concomitant]
     Active Substance: CEFEPIME HYDROCHLORIDE
     Dosage: 2 GRAM
     Route: 042
     Dates: start: 20231004, end: 20231013
  9. LEVOFLOXACIN [Concomitant]
     Active Substance: LEVOFLOXACIN
     Dosage: 500 MILLIGRAM
     Route: 048
     Dates: start: 20231004, end: 20231013

REACTIONS (1)
  - Septic shock [Not Recovered/Not Resolved]

NARRATIVE: CASE EVENT DATE: 20231016
